FAERS Safety Report 12060949 (Version 1)
Quarter: 2016Q1

REPORT INFORMATION
  Report Type: Spontaneous
  Country: US (occurrence: US)
  Receive Date: 20160210
  Receipt Date: 20160210
  Transmission Date: 20160526
  Serious: No
  Sender: FDA-Public Use
  Company Number: US-MYLANLABS-2015M1046380

PATIENT
  Age: 24 Year
  Sex: Female
  Weight: 69.84 kg

DRUGS (1)
  1. XULANE [Suspect]
     Active Substance: ETHINYL ESTRADIOL\NORELGESTROMIN
     Indication: CONTRACEPTION
     Dosage: 150/35 ?G/DAY, CHANGED QWK FOR 3 WEEKS, THEN OFF 1 WEEK
     Route: 062
     Dates: start: 2014

REACTIONS (2)
  - Product adhesion issue [None]
  - Metrorrhagia [Not Recovered/Not Resolved]

NARRATIVE: CASE EVENT DATE: 201509
